FAERS Safety Report 17476990 (Version 1)
Quarter: 2020Q1

REPORT INFORMATION
  Report Type: Report from Study
  Country: CA (occurrence: CA)
  Receive Date: 20200228
  Receipt Date: 20200228
  Transmission Date: 20200409
  Serious: Yes (Death, Hospitalization)
  Sender: FDA-Public Use
  Company Number: CA-JNJFOC-20190937859

PATIENT
  Age: 56 Year
  Sex: Female

DRUGS (1)
  1. SIMPONI [Suspect]
     Active Substance: GOLIMUMAB
     Indication: RHEUMATOID ARTHRITIS
     Route: 058
     Dates: start: 20190519, end: 20191015

REACTIONS (4)
  - Product use issue [Unknown]
  - Off label use [Unknown]
  - Emphysema [Unknown]
  - Pneumonia [Fatal]

NARRATIVE: CASE EVENT DATE: 20190930
